FAERS Safety Report 11275686 (Version 1)
Quarter: 2015Q2

REPORT INFORMATION
  Report Type: Spontaneous
  Country: US (occurrence: None)
  Receive Date: 20150625
  Receipt Date: 20150625
  Transmission Date: 20150821
  Serious: Yes (Other)
  Sender: FDA-Public Use
  Company Number: PHEH2014US023560

PATIENT
  Sex: Female

DRUGS (1)
  1. ZYKADIA [Suspect]
     Active Substance: CERITINIB
     Indication: NON-SMALL CELL LUNG CANCER
     Route: 048
     Dates: start: 20140810, end: 20140821

REACTIONS (3)
  - Malignant neoplasm progression [None]
  - Non-small cell lung cancer [None]
  - Metastases to central nervous system [None]

NARRATIVE: CASE EVENT DATE: 20141121
